FAERS Safety Report 9742962 (Version 1)
Quarter: 2013Q4

REPORT INFORMATION
  Report Type: Spontaneous
  Country: US (occurrence: US)
  Receive Date: 20131210
  Receipt Date: 20131210
  Transmission Date: 20140711
  Serious: No
  Sender: FDA-Public Use
  Company Number: US-TEVA-439419USA

PATIENT
  Sex: Female

DRUGS (1)
  1. BUDESONIDE [Suspect]
     Dosage: 0.5 MG/2.5 ML INHALATION SUSPENSION

REACTIONS (7)
  - Chest pain [Unknown]
  - Tachycardia [Unknown]
  - Dyspnoea [Unknown]
  - Tremor [Unknown]
  - Muscular weakness [Unknown]
  - Screaming [Unknown]
  - Drug administration error [Unknown]
